FAERS Safety Report 6336726-2 (Version None)
Quarter: 2009Q3

REPORT INFORMATION
  Report Type: 
  Country: None (occurrence: None)
  Receive Date: 20090901
  Receipt Date: 20090825
  Transmission Date: 20100115
  Serious: Yes (Other)
  Sender: FDA-Public Use
  Company Number: BR-PFIZER INC-2009246358

PATIENT
  Age: 47 Year

DRUGS (6)
  1. LIPITOR [Suspect]
     Indication: BLOOD CHOLESTEROL INCREASED
     Dosage: 20 MG, 1X/DAY
     Route: 048
     Dates: start: 20080801
  2. LIPITOR [Suspect]
     Indication: BLOOD TRIGLYCERIDES INCREASED
  3. PROPRANOLOL [Concomitant]
     Indication: MITRAL VALVE DISEASE
     Dosage: 40 MG, 1X/DAY
  4. VITAMIN B COMPLEX CAP [Concomitant]
     Indication: MUSCLE SPASMS
     Dosage: UNK
  5. TRISORB [Concomitant]
     Dosage: DOSE UNKNOWN, 6X/DAY
     Dates: start: 20040101
  6. TIMOLOL MALEATE [Concomitant]
     Dosage: 5 MG, 2X/DAY

REACTIONS (13)
  - BLOOD TRIGLYCERIDES INCREASED [None]
  - DEPRESSION [None]
  - DIZZINESS [None]
  - FEELING DRUNK [None]
  - GLUCOSE TOLERANCE IMPAIRED [None]
  - HYPOAESTHESIA [None]
  - HYPOTENSION [None]
  - MALAISE [None]
  - MUSCLE SPASMS [None]
  - NECK PAIN [None]
  - PAIN IN EXTREMITY [None]
  - TACHYCARDIA [None]
  - WEIGHT DECREASED [None]
